FAERS Safety Report 4441359-9 (Version None)
Quarter: 2004Q3

REPORT INFORMATION
  Report Type: 
  Country: None (occurrence: None)
  Receive Date: 20040728
  Receipt Date: 20040325
  Transmission Date: 20050211
  Serious: No
  Sender: FDA-Public Use
  Company Number: USA040363257

PATIENT
  Age: 39 Year
  Sex: Male
  Weight: 100 kg

DRUGS (4)
  1. STRATTERA [Suspect]
     Dosage: 120 MG DAY
     Dates: start: 20030801
  2. TEGRETOL [Concomitant]
  3. TRAZODONE HCL [Concomitant]
  4. ZOLOFT [Concomitant]

REACTIONS (2)
  - FLUSHING [None]
  - PRESCRIBED OVERDOSE [None]
